FAERS Safety Report 6558666-6 (Version None)
Quarter: 2010Q1

REPORT INFORMATION
  Report Type: 
  Country: None (occurrence: None)
  Receive Date: 20100128
  Receipt Date: 20100128
  Transmission Date: 20100710
  Serious: Yes (Other)
  Sender: FDA-Public Use
  Company Number: None

PATIENT
  Sex: Female
  Weight: 64.4108 kg

DRUGS (1)
  1. BONIVA [Suspect]
     Dosage: 1 TABLET ONCE MO.
     Dates: start: 20080601, end: 20091101

REACTIONS (1)
  - OSTEOPOROSIS [None]
